FAERS Safety Report 24306430 (Version 1)
Quarter: 2024Q3

REPORT INFORMATION
  Report Type: Spontaneous
  Country: AU (occurrence: AU)
  Receive Date: 20240911
  Receipt Date: 20240911
  Transmission Date: 20241016
  Serious: Yes (Other)
  Sender: TERSERA THERAPEUTICS
  Company Number: AU-AstraZeneca-2024-283620

PATIENT

DRUGS (7)
  1. GOSERELIN [Suspect]
     Active Substance: GOSERELIN
     Indication: Hormone receptor positive HER2 negative breast cancer
     Dosage: UNK
     Route: 058
     Dates: start: 201903, end: 202005
  2. ZOLADEX [Suspect]
     Active Substance: GOSERELIN ACETATE
     Indication: Hormone receptor positive HER2 negative breast cancer
     Dosage: UNK
     Route: 065
  3. FULVESTRANT [Suspect]
     Active Substance: FULVESTRANT
     Indication: Hormone receptor positive HER2 negative breast cancer
     Dosage: UNK
     Route: 030
     Dates: start: 202207
  4. CAPECITABINE [Suspect]
     Active Substance: CAPECITABINE
     Indication: Hormone receptor positive HER2 negative breast cancer
     Dosage: UNK
     Route: 065
     Dates: start: 202006, end: 202207
  5. RIBOCICLIB [Suspect]
     Active Substance: RIBOCICLIB
     Indication: Hormone receptor positive HER2 negative breast cancer
     Dosage: UNK
     Route: 065
     Dates: start: 201903, end: 202005
  6. LETROZOLE [Suspect]
     Active Substance: LETROZOLE
     Indication: Hormone receptor positive HER2 negative breast cancer
     Dosage: UNK
     Route: 065
     Dates: start: 201903, end: 202005
  7. PACLITAXEL [Suspect]
     Active Substance: PACLITAXEL
     Indication: Hormone receptor positive HER2 negative breast cancer
     Dosage: 100 MILLIGRAM/SQUARE METRE
     Route: 065
     Dates: start: 202209, end: 202306

REACTIONS (2)
  - Cystoid macular oedema [Recovered/Resolved]
  - Drug ineffective [Unknown]
